FAERS Safety Report 6599909-2 (Version None)
Quarter: 2010Q1

REPORT INFORMATION
  Report Type: 
  Country: None (occurrence: None)
  Receive Date: 20100224
  Receipt Date: 20100219
  Transmission Date: 20100710
  Serious: Yes (Death, Hospitalization, Disabling)
  Sender: FDA-Public Use
  Company Number: JP-BAYER-200810962BYL

PATIENT
  Age: 52 Year
  Sex: Male
  Weight: 48 kg

DRUGS (10)
  1. NEXAVAR [Suspect]
     Indication: RENAL CELL CARCINOMA
     Dosage: TOTAL DAILY DOSE: 800 MG  UNIT DOSE: 200 MG
     Route: 048
     Dates: start: 20080418, end: 20080424
  2. NEXAVAR [Suspect]
     Dosage: TOTAL DAILY DOSE: 400 MG  UNIT DOSE: 200 MG
     Route: 048
     Dates: start: 20080425, end: 20080521
  3. EURAX H [Concomitant]
     Route: 061
     Dates: start: 20080425, end: 20080810
  4. LOXONIN [Concomitant]
     Indication: CANCER PAIN
     Route: 048
     Dates: start: 20080418, end: 20080810
  5. MUCOSTA [Concomitant]
     Indication: PROPHYLAXIS
     Route: 048
     Dates: start: 20080418, end: 20080810
  6. MUCODYNE [Concomitant]
     Indication: LUNG DISORDER
     Route: 048
     Dates: start: 20080418, end: 20080425
  7. ASTOMIN [Concomitant]
     Indication: LUNG DISORDER
     Route: 048
     Dates: start: 20080418, end: 20080425
  8. PASTARON [Concomitant]
     Route: 061
     Dates: start: 20080425, end: 20080810
  9. FLAVITAN [Concomitant]
     Route: 048
     Dates: start: 20080507, end: 20080810
  10. NIZORAL LOTION [Concomitant]
     Route: 061
     Dates: start: 20080514, end: 20080810

REACTIONS (8)
  - CACHEXIA [None]
  - CARDIAC FAILURE CONGESTIVE [None]
  - CARDIOMYOPATHY [None]
  - DYSPHONIA [None]
  - MALAISE [None]
  - PALMAR-PLANTAR ERYTHRODYSAESTHESIA SYNDROME [None]
  - RENAL CELL CARCINOMA STAGE IV [None]
  - SEBORRHOEIC DERMATITIS [None]
